FAERS Safety Report 10034594 (Version 6)
Quarter: 2015Q2

REPORT INFORMATION
  Report Type: Spontaneous
  Country: FI (occurrence: FI)
  Receive Date: 20140325
  Receipt Date: 20150626
  Transmission Date: 20150821
  Serious: Yes (Other)
  Sender: FDA-Public Use
  Company Number: FI-UCBSA-115533

PATIENT
  Sex: Female

DRUGS (9)
  1. CIMZIA [Suspect]
     Active Substance: CERTOLIZUMAB PEGOL
     Indication: JUVENILE IDIOPATHIC ARTHRITIS
     Dosage: LOADING DOSE
     Dates: start: 20140116, end: 20140213
  2. MINISUN MULTIVITAMIN [Concomitant]
  3. TREXAN [Concomitant]
     Active Substance: METHOTREXATE SODIUM
     Dosage: 25MG DOSAGE STRENGTH
  4. SPIRONOLACTONE. [Concomitant]
     Active Substance: SPIRONOLACTONE
     Indication: ACNE
     Dosage: 50 MG, ONCE DAILY (QD)
  5. OSTAGEL [Concomitant]
     Indication: DRY EYE
  6. CALCICHEW D3 EXTRA APPELSIINI [Concomitant]
     Indication: OSTEOPOROSIS
  7. CIMZIA [Suspect]
     Active Substance: CERTOLIZUMAB PEGOL
     Dosage: MAINTENENCE DOSE
     Dates: start: 20140227, end: 20140424
  8. CERAZETTE [Concomitant]
     Active Substance: DESOGESTREL
     Indication: HORMONE REPLACEMENT THERAPY
  9. ACIDFOL [Concomitant]
     Dosage: 5 MG, ONCE DAILY (QD)

REACTIONS (4)
  - Off label use [Recovered/Resolved]
  - Injection site bruising [Recovering/Resolving]
  - Menorrhagia [Recovered/Resolved]
  - Oral disorder [Not Recovered/Not Resolved]

NARRATIVE: CASE EVENT DATE: 20140116
